FAERS Safety Report 24394657 (Version 1)
Quarter: 2024Q4

REPORT INFORMATION
  Report Type: Spontaneous
  Country: CN (occurrence: CN)
  Receive Date: 20241004
  Receipt Date: 20241004
  Transmission Date: 20250115
  Serious: Yes (Other)
  Sender: ALCON
  Company Number: CN-ALCON LABORATORIES-ALC2024CN004417

PATIENT
  Age: 15 Year
  Sex: Female
  Weight: 65 kg

DRUGS (1)
  1. FLUORESCEIN SODIUM [Suspect]
     Active Substance: FLUORESCEIN SODIUM
     Indication: Angiogram retina
     Dosage: 0.1 G, ONCE/SINGLE
     Route: 042
     Dates: start: 20240918, end: 20240918

REACTIONS (2)
  - Palpitations [Recovered/Resolved]
  - Nausea [Recovered/Resolved]

NARRATIVE: CASE EVENT DATE: 20240918
